FAERS Safety Report 16939477 (Version 1)
Quarter: 2019Q4

REPORT INFORMATION
  Report Type: Report from Study
  Country: CN (occurrence: CN)
  Receive Date: 20191021
  Receipt Date: 20191021
  Transmission Date: 20200122
  Serious: Yes (Other)
  Sender: FDA-Public Use
  Company Number: CN-ROCHE-2442630

PATIENT

DRUGS (4)
  1. DEXAMETHASONE. [Suspect]
     Active Substance: DEXAMETHASONE
     Indication: IMMUNE THROMBOCYTOPENIC PURPURA
     Dosage: 40 MG PER DAY, ADMINISTERED ON DAY 1-4
     Route: 048
  2. RITUXIMAB. [Suspect]
     Active Substance: RITUXIMAB
     Indication: IMMUNE THROMBOCYTOPENIC PURPURA
     Dosage: ADMINISTERED ON DAY 7, DAY 14, DAY 21 AND DAY 28
     Route: 041
  3. PROMETHAZINE HYDROCHLORIDE. [Concomitant]
     Active Substance: PROMETHAZINE HYDROCHLORIDE
     Dosage: ORAL BEFORE ADMINISTRATION OF RITUXIMAB 30-60 MINUTES
     Route: 048
  4. HYDROCORTISONE. [Concomitant]
     Active Substance: HYDROCORTISONE
     Dosage: INTRAVENOUS DRIP BEFORE ADMINISTRATION OF RITUXIMAB 30-60 MINUTES
     Route: 041

REACTIONS (1)
  - Hypokalaemia [Recovering/Resolving]
